FAERS Safety Report 16633600 (Version 1)
Quarter: 2019Q3

REPORT INFORMATION
  Report Type: Spontaneous
  Country: US (occurrence: US)
  Receive Date: 20190725
  Receipt Date: 20190725
  Transmission Date: 20191004
  Serious: Yes (Other)
  Sender: FDA-Public Use
  Company Number: None

PATIENT
  Age: 60 Year
  Sex: Female
  Weight: 70.2 kg

DRUGS (4)
  1. ENTYVIO [Suspect]
     Active Substance: VEDOLIZUMAB
     Indication: COLITIS
     Dosage: ?          OTHER FREQUENCY:EVERY 2 MOS;?
     Route: 042
     Dates: start: 20180701
  2. SULFASALAZINE. [Concomitant]
     Active Substance: SULFASALAZINE
  3. ATORVASTATIN [Concomitant]
     Active Substance: ATORVASTATIN
  4. LOSARTAN. [Concomitant]
     Active Substance: LOSARTAN

REACTIONS (6)
  - Dry skin [None]
  - Vulvovaginal pruritus [None]
  - Pruritus [None]
  - Psoriasis [None]
  - Eczema [None]
  - Skin disorder [None]

NARRATIVE: CASE EVENT DATE: 20190425
